FAERS Safety Report 5756634-5 (Version None)
Quarter: 2008Q2

REPORT INFORMATION
  Report Type: 
  Country: None (occurrence: None)
  Receive Date: 20080603
  Receipt Date: 20080529
  Transmission Date: 20081010
  Serious: Yes (Hospitalization)
  Sender: FDA-Public Use
  Company Number: DE-ABBOTT-07P-062-0416172-00

PATIENT
  Sex: Male
  Weight: 74 kg

DRUGS (6)
  1. KALETRA [Suspect]
     Indication: HIV INFECTION
     Dosage: 400/100; 2 X 200/50
     Route: 048
     Dates: start: 20070405
  2. KALETRA [Suspect]
     Dosage: 800/200
     Route: 048
  3. ZIDOVUDINE [Suspect]
     Indication: HIV INFECTION
     Dosage: 2 X 1
     Route: 048
     Dates: start: 20070405
  4. TENOFOVIR DISOPROXIL FUMARATE [Suspect]
     Indication: HIV INFECTION
     Route: 048
  5. LAXOFALK [Concomitant]
     Indication: HEPATITIS
     Dates: start: 20070807
  6. MORPHINE [Concomitant]
     Indication: ANALGESIC THERAPY
     Dates: start: 20070807

REACTIONS (5)
  - HAEMOPTYSIS [None]
  - HEPATITIS C [None]
  - LUNG INFILTRATION [None]
  - NEOPLASM MALIGNANT [None]
  - PNEUMONIA [None]
